FAERS Safety Report 9928925 (Version 1)
Quarter: 2014Q1

REPORT INFORMATION
  Report Type: Report from Study
  Country: GB (occurrence: GB)
  Receive Date: 20140227
  Receipt Date: 20140227
  Transmission Date: 20141002
  Serious: Yes (Other)
  Sender: FDA-Public Use
  Company Number: GB-BAXTER-2014BAX009901

PATIENT
  Sex: 0

DRUGS (1)
  1. CEPROTIN 1000 IU [Suspect]
     Indication: PROTEIN C DEFICIENCY
     Route: 058

REACTIONS (2)
  - Injection site cellulitis [Unknown]
  - Incorrect route of drug administration [Unknown]
